FAERS Safety Report 11109779 (Version 1)
Quarter: 2015Q2

REPORT INFORMATION
  Report Type: Spontaneous
  Country: US (occurrence: US)
  Receive Date: 20150513
  Receipt Date: 20150513
  Transmission Date: 20150821
  Serious: No
  Sender: FDA-Public Use
  Company Number: US-BAYER-2015-200381

PATIENT
  Age: 76 Year
  Sex: Female
  Weight: 82 kg

DRUGS (6)
  1. EFFEXOR [Suspect]
     Active Substance: VENLAFAXINE HYDROCHLORIDE
     Indication: DEPRESSION
     Dosage: 175 MG, QD
     Route: 048
  2. ESTRADIOL. [Concomitant]
     Active Substance: ESTRADIOL
     Dosage: 1 MG, QD
     Route: 048
  3. PRISTIQ EXTENDED RELEASE [Suspect]
     Active Substance: DESVENLAFAXINE SUCCINATE
     Indication: DEPRESSION
     Dosage: UNK
     Route: 048
     Dates: start: 20150319
  4. ALPRAZOLAM. [Suspect]
     Active Substance: ALPRAZOLAM
     Indication: ANXIETY
     Dosage: 0.25 MG, QD
     Route: 048
  5. ALEVE [Suspect]
     Active Substance: NAPROXEN SODIUM
     Indication: PAIN
     Dosage: UNK
  6. FLUOXETINE HYDROCHLORIDE. [Suspect]
     Active Substance: FLUOXETINE HYDROCHLORIDE
     Indication: DEPRESSION
     Dosage: 40 MG, QD
     Route: 048

REACTIONS (11)
  - Nervousness [Unknown]
  - Renal disorder [Unknown]
  - Feeling abnormal [Unknown]
  - Drug ineffective [Unknown]
  - Malaise [Unknown]
  - Weight increased [Unknown]
  - Asthenia [Unknown]
  - Pain in extremity [Unknown]
  - Feeling abnormal [Unknown]
  - Malaise [None]
  - Drug ineffective [Unknown]

NARRATIVE: CASE EVENT DATE: 20150323
